FAERS Safety Report 23322142 (Version 2)
Quarter: 2023Q4

REPORT INFORMATION
  Report Type: Spontaneous
  Country: DE (occurrence: DE)
  Receive Date: 20231220
  Receipt Date: 20231227
  Transmission Date: 20240110
  Serious: Yes (Other)
  Sender: FDA-Public Use
  Company Number: DE-BAXTER-2023BAX036023

PATIENT
  Age: 39 Year
  Sex: Male

DRUGS (5)
  1. SEVOFLURANE [Suspect]
     Active Substance: SEVOFLURANE
     Indication: Sedative therapy
     Dosage: CONCENTRATIONS BETWEEN 0.7 AND 1.0 MAC
     Route: 055
  2. PROPOFOL [Concomitant]
     Active Substance: PROPOFOL
     Indication: Analgesic therapy
     Route: 065
  3. LORMETAZEPAM [Concomitant]
     Active Substance: LORMETAZEPAM
     Indication: Analgesic therapy
     Route: 065
  4. SUFENTANIL [Concomitant]
     Active Substance: SUFENTANIL
     Indication: Analgesic therapy
     Route: 065
  5. MORPHINE [Concomitant]
     Active Substance: MORPHINE
     Indication: Supportive care
     Route: 042

REACTIONS (3)
  - Hypernatraemia [Recovered/Resolved]
  - Off label use [Unknown]
  - Nephrogenic diabetes insipidus [Unknown]
